FAERS Safety Report 5295819-1 (Version None)
Quarter: 2007Q2

REPORT INFORMATION
  Report Type: 
  Country: None (occurrence: None)
  Receive Date: 20070410
  Receipt Date: 20070410
  Transmission Date: 20071010
  Serious: No
  Sender: FDA-Public Use
  Company Number: None

PATIENT

DRUGS (4)
  1. ALBUTEROL [Suspect]
     Dosage: SOLUTION, CONCENTRATE
  2. IPRATROPIUM BROMIDE [Suspect]
     Dosage: SOLUTION, CONCENTRATE
  3. XOPENEX [Suspect]
     Dosage: SOLUTION, CONCENTRATE
  4. XOPENEX [Suspect]
     Dosage: SOLUTION-CONCENTRATE

REACTIONS (1)
  - MEDICATION ERROR [None]
